FAERS Safety Report 18629299 (Version 1)
Quarter: 2020Q4

REPORT INFORMATION
  Report Type: Spontaneous
  Country: US (occurrence: US)
  Receive Date: 20201217
  Receipt Date: 20201217
  Transmission Date: 20210114
  Serious: Yes (Disabling, Other)
  Sender: FDA-Public Use
  Company Number: US-PURDUE-USA-2020-0180747

PATIENT
  Sex: Female

DRUGS (4)
  1. OXYCODONE HYDROCHLORIDE (SIMILAR TO NDA 22-272) [Suspect]
     Active Substance: OXYCODONE HYDROCHLORIDE
     Indication: SCOLIOSIS
     Dosage: UNK
     Route: 048
  2. TRAMADOL. [Suspect]
     Active Substance: TRAMADOL
     Indication: SCOLIOSIS
     Dosage: UNK
     Route: 065
  3. BUPRENORPHINE TRANSDERMAL PATCH (SIMILAR TO NDA 21-306) [Suspect]
     Active Substance: BUPRENORPHINE
     Indication: SCOLIOSIS
     Dosage: UNK
     Route: 062
  4. OXYCONTIN [Suspect]
     Active Substance: OXYCODONE HYDROCHLORIDE
     Indication: SCOLIOSIS
     Dosage: UNK
     Route: 048

REACTIONS (6)
  - Drug withdrawal syndrome [Unknown]
  - Disability [Unknown]
  - Personality change [Unknown]
  - Sleep disorder [Unknown]
  - Migraine [Unknown]
  - Depression [Unknown]
